FAERS Safety Report 4347262-7 (Version None)
Quarter: 2004Q1

REPORT INFORMATION
  Report Type: 
  Country: None (occurrence: None)
  Receive Date: 20040325
  Receipt Date: 20040129
  Transmission Date: 20041129
  Serious: No
  Sender: FDA-Public Use
  Company Number: USA040157965

PATIENT
  Age: 76 Year
  Sex: Female

DRUGS (11)
  1. FORTEO [Suspect]
     Indication: OSTEOPOROSIS
     Dosage: 20 UG/DAY
     Dates: start: 20040119
  2. EVISTA [Suspect]
  3. HUMULIN 30/70 (INSULIN HUMAN INJECTION, ISOPHANE) [Concomitant]
  4. MIACALCIN [Concomitant]
  5. PREDNISONE [Concomitant]
  6. ATENOLOL [Concomitant]
  7. SYNTHROID [Concomitant]
  8. ZOCOR [Concomitant]
  9. ULTRAM [Concomitant]
  10. VICODIN ES [Concomitant]
  11. VITAMIN B-12 [Concomitant]

REACTIONS (6)
  - DRUG HYPERSENSITIVITY [None]
  - EYE SWELLING [None]
  - LACRIMATION INCREASED [None]
  - MUSCLE CRAMP [None]
  - PRODUCTIVE COUGH [None]
  - SWELLING FACE [None]
